FAERS Safety Report 19395218 (Version 2)
Quarter: 2021Q2

REPORT INFORMATION
  Report Type: Spontaneous
  Country: US (occurrence: GR)
  Receive Date: 20210609
  Receipt Date: 20210610
  Transmission Date: 20210717
  Serious: Yes (Death, Other)
  Sender: FDA-Public Use
  Company Number: GB-ABBVIE-21K-167-3940892-00

PATIENT

DRUGS (1)
  1. ADALIMUMAB [Suspect]
     Active Substance: ADALIMUMAB
     Indication: CROHN^S DISEASE
     Dosage: 40 MG/0.4 ML
     Route: 058

REACTIONS (10)
  - Injection site reaction [Unknown]
  - Gastrointestinal obstruction [Unknown]
  - Drug ineffective [Unknown]
  - Infection [Unknown]
  - Infusion related reaction [Unknown]
  - Adverse event [Unknown]
  - Basal cell carcinoma [Unknown]
  - Pulmonary tuberculosis [Unknown]
  - Crohn^s disease [Unknown]
  - Pulmonary embolism [Fatal]
